FAERS Safety Report 6722851-0 (Version None)
Quarter: 2010Q2

REPORT INFORMATION
  Report Type: 
  Country: None (occurrence: None)
  Receive Date: 20100512
  Receipt Date: 20100512
  Transmission Date: 20101027
  Serious: Yes (Other)
  Sender: FDA-Public Use
  Company Number: None

PATIENT
  Age: 77 Year
  Sex: Male
  Weight: 79 kg

DRUGS (2)
  1. DAPTOMYCIN [Suspect]
     Indication: ENTEROCOCCAL INFECTION
     Dosage: DAPTOMYCIN 10 MG/KG IV
     Route: 042
     Dates: start: 20100302, end: 20100310
  2. PRAVASTATIN [Suspect]
     Indication: LIPIDS ABNORMAL
     Dosage: PRAVASTATIN 20 MG DAILY PO
     Route: 048
     Dates: start: 20100302, end: 20100305

REACTIONS (1)
  - BLOOD CREATINE PHOSPHOKINASE INCREASED [None]
